FAERS Safety Report 9323007 (Version 1)
Quarter: 2013Q2

REPORT INFORMATION
  Report Type: Spontaneous
  Country: IN (occurrence: IN)
  Receive Date: 20130603
  Receipt Date: 20130603
  Transmission Date: 20140414
  Serious: Yes (Hospitalization)
  Sender: FDA-Public Use
  Company Number: PHHY2013IN053497

PATIENT
  Age: 10 Year
  Sex: Female

DRUGS (8)
  1. ISONIAZID [Suspect]
     Indication: PULMONARY TUBERCULOSIS
  2. ISONIAZID [Suspect]
     Dosage: 100 MG, REINTRODUCED ON THE SIXTH DAY
     Route: 048
  3. ISONIAZID [Suspect]
     Dosage: 1 DF, REINTRODUCED ON THE NINTH DAY
     Route: 048
  4. ISONIAZID [Suspect]
     Dosage: 10 MG, REINTRODUCED ON THE TENTH DAY
     Route: 048
  5. RIFAMPICIN [Concomitant]
     Indication: PULMONARY TUBERCULOSIS
     Route: 048
  6. RIFAMPICIN [Concomitant]
     Dosage: 250 MG, UNK
     Route: 048
  7. ETHAMBUTOL [Concomitant]
     Indication: PULMONARY TUBERCULOSIS
     Dosage: 400 MG, REINTRODUCED ON THE FOURTH DAY
     Route: 048
  8. PYRAZINAMIDE [Concomitant]
     Indication: PULMONARY TUBERCULOSIS
     Dosage: 500 MG, UNK
     Route: 048

REACTIONS (10)
  - Influenza like illness [Recovered/Resolved]
  - Pyrexia [Recovered/Resolved]
  - Productive cough [Recovered/Resolved]
  - Chills [Recovered/Resolved]
  - Rhinorrhoea [Recovered/Resolved]
  - Cough [Recovered/Resolved]
  - Dyspnoea [Recovered/Resolved]
  - Pain [Recovered/Resolved]
  - Pallor [Recovered/Resolved]
  - Nausea [Recovered/Resolved]
